FAERS Safety Report 6543328-1 (Version None)
Quarter: 2010Q1

REPORT INFORMATION
  Report Type: 
  Country: None (occurrence: None)
  Receive Date: 20100120
  Receipt Date: 20091102
  Transmission Date: 20100710
  Serious: Yes (Hospitalization, Other)
  Sender: FDA-Public Use
  Company Number: US-PFIZER INC-2009280947

PATIENT
  Sex: Male
  Weight: 79.819 kg

DRUGS (11)
  1. TIKOSYN [Suspect]
     Indication: ATRIAL FIBRILLATION
     Dosage: 500 UG, 2X/DAY
     Route: 048
     Dates: start: 20070208
  2. DIGITOXIN INJ [Concomitant]
  3. COZAAR [Concomitant]
  4. CARDIZEM [Concomitant]
  5. WARFARIN SODIUM [Concomitant]
     Indication: ATRIAL FIBRILLATION
     Dosage: 7.5 MG, UNK
  6. IRON [Concomitant]
  7. POTASSIUM [Concomitant]
  8. PREVACID [Concomitant]
     Dosage: 30 MG, 2X/DAY
  9. LISINOPRIL [Concomitant]
     Dosage: 10 MG, UNK
  10. DIGOXIN [Concomitant]
     Dosage: 0.25 MG, UNK
  11. FUROSEMIDE [Concomitant]
     Dosage: 20 MG, UNK

REACTIONS (9)
  - ANAEMIA [None]
  - ARTHRALGIA [None]
  - ATRIAL FIBRILLATION [None]
  - BLOOD POTASSIUM DECREASED [None]
  - BLOOD PRESSURE DECREASED [None]
  - CHEST PAIN [None]
  - INTERMITTENT CLAUDICATION [None]
  - MUSCLE DISORDER [None]
  - SMALL INTESTINAL HAEMORRHAGE [None]
